FAERS Safety Report 8278999-5 (Version None)
Quarter: 2012Q2

REPORT INFORMATION
  Report Type: 
  Country: None (occurrence: None)
  Receive Date: 20120412
  Receipt Date: 20120117
  Transmission Date: 20120825
  Serious: No
  Sender: FDA-Public Use
  Company Number: US-ASTRAZENECA-2011SE42214

PATIENT
  Age: 46 Year
  Sex: Female

DRUGS (3)
  1. LEDIDINE [Concomitant]
  2. NEXIUM [Suspect]
     Route: 048
  3. OMEPRAZOLE [Suspect]
     Indication: GASTROOESOPHAGEAL REFLUX DISEASE
     Route: 048

REACTIONS (7)
  - MALAISE [None]
  - VOMITING [None]
  - DRUG DOSE OMISSION [None]
  - PAIN [None]
  - DRUG INEFFECTIVE [None]
  - GASTROOESOPHAGEAL REFLUX DISEASE [None]
  - RETCHING [None]
